FAERS Safety Report 12487899 (Version 2)
Quarter: 2016Q3

REPORT INFORMATION
  Report Type: Spontaneous
  Country: GB (occurrence: GB)
  Receive Date: 20160622
  Receipt Date: 20160712
  Transmission Date: 20161109
  Serious: Yes (Life-Threatening, Hospitalization)
  Sender: FDA-Public Use
  Company Number: GB-AUROBINDO-AUR-APL-2016-08213

PATIENT
  Sex: Female

DRUGS (2)
  1. PROPRANOLOL [Suspect]
     Active Substance: PROPRANOLOL\PROPRANOLOL HYDROCHLORIDE
     Indication: PRODUCT USED FOR UNKNOWN INDICATION
     Dosage: 2.2 G,
     Route: 065
  2. TRAMADOL. [Suspect]
     Active Substance: TRAMADOL
     Indication: PRODUCT USED FOR UNKNOWN INDICATION
     Dosage: 2 G, UNK
     Route: 065

REACTIONS (7)
  - Overdose [Recovered/Resolved]
  - Loss of consciousness [Recovered/Resolved]
  - Bradycardia [Recovered/Resolved]
  - Cardiac arrest [Recovered/Resolved]
  - Syncope [Recovered/Resolved]
  - Ventricular fibrillation [Recovered/Resolved]
  - Toxicity to various agents [Recovered/Resolved]
